FAERS Safety Report 7757785-6 (Version None)
Quarter: 2011Q3

REPORT INFORMATION
  Report Type: 
  Country: None (occurrence: None)
  Receive Date: 20110918
  Receipt Date: 20110907
  Transmission Date: 20111222
  Serious: Yes (Other)
  Sender: FDA-Public Use
  Company Number: JP-CELGENEUS-087-21880-11063919

PATIENT
  Sex: Female

DRUGS (15)
  1. METHYCOBAL [Concomitant]
     Indication: DISEASE COMPLICATION
     Dosage: 1500 U G
     Route: 048
  2. WARFARIN SODIUM [Concomitant]
     Indication: DISEASE COMPLICATION
     Dosage: 2 MILLIGRAM
     Route: 048
  3. LANSOPRAZOLE [Concomitant]
     Indication: DISEASE COMPLICATION
     Dosage: 30 MILLIGRAM
     Route: 065
  4. PELTAZON [Concomitant]
     Indication: DISEASE COMPLICATION
     Dosage: 75 MILLIGRAM
     Route: 048
  5. ZOMETA [Concomitant]
     Indication: DISEASE COMPLICATION
     Dosage: 4 MILLIGRAM
     Route: 041
     Dates: start: 20110126
  6. DILTIAZEM HCL [Concomitant]
     Indication: DISEASE COMPLICATION
     Dosage: 200 MILLIGRAM
     Route: 048
  7. LEVOTHYROXINE SODIUM [Concomitant]
     Indication: DISEASE COMPLICATION
     Dosage: 100 U G
     Route: 048
  8. ACETAMINOPHEN [Concomitant]
     Indication: DISEASE COMPLICATION
     Dosage: 600 MILLIGRAM
     Route: 048
  9. DEPAS [Concomitant]
     Indication: DISEASE COMPLICATION
     Dosage: .5 MILLIGRAM
     Route: 048
  10. SULFAMETHOXAZOLE [Concomitant]
     Indication: PROPHYLAXIS
     Dosage: 1 GRAM
     Route: 048
  11. REVLIMID [Suspect]
     Indication: REFRACTORY CANCER
  12. LENDORMIN [Concomitant]
     Indication: DISEASE COMPLICATION
     Dosage: .25 MILLIGRAM
     Route: 048
  13. REVLIMID [Suspect]
     Indication: MULTIPLE MYELOMA
     Dosage: 25 MILLIGRAM
     Route: 048
     Dates: start: 20110126, end: 20110215
  14. ROCALTROL [Concomitant]
     Indication: DISEASE COMPLICATION
     Dosage: 0.5 UG
     Route: 048
  15. CRESTOR [Concomitant]
     Indication: HYPERTENSION
     Dosage: 2.5 MILLIGRAM
     Route: 048

REACTIONS (2)
  - PRINZMETAL ANGINA [None]
  - NEUTROPENIA [None]
